FAERS Safety Report 16126581 (Version 1)
Quarter: 2019Q1

REPORT INFORMATION
  Report Type: Spontaneous
  Country: US (occurrence: US)
  Receive Date: 20190222
  Receipt Date: 20190222
  Transmission Date: 20190418
  Serious: Yes (Hospitalization)
  Sender: FDA-Public Use
  Company Number: None

PATIENT
  Age: 52 Year
  Sex: Male

DRUGS (2)
  1. LITHIUM. [Suspect]
     Active Substance: LITHIUM
     Indication: BIPOLAR DISORDER
     Dates: start: 20181027, end: 20181110
  2. LITHIUM. [Suspect]
     Active Substance: LITHIUM
     Indication: MANIA
     Dates: start: 20181027, end: 20181110

REACTIONS (5)
  - Toxicity to various agents [None]
  - Dialysis [None]
  - Metal poisoning [None]
  - Acute kidney injury [None]
  - Mental impairment [None]

NARRATIVE: CASE EVENT DATE: 20181110
